FAERS Safety Report 5690335-7 (Version None)
Quarter: 2008Q1

REPORT INFORMATION
  Report Type: 
  Country: None (occurrence: None)
  Receive Date: 20080331
  Receipt Date: 20080331
  Transmission Date: 20080703
  Serious: Yes (Hospitalization)
  Sender: FDA-Public Use
  Company Number: None

PATIENT
  Age: 20 Year
  Sex: Male

DRUGS (2)
  1. WELLBUTRIN [Suspect]
     Indication: DEPRESSION
     Dosage: 100 MG TWICE DAILY PO
     Route: 048
     Dates: start: 20080321, end: 20080324
  2. RITALIN [Suspect]
     Indication: ATTENTION DEFICIT/HYPERACTIVITY DISORDER
     Dosage: 20 MG TID PO; LONG-TERM THERAPY
     Route: 048

REACTIONS (9)
  - ANXIETY [None]
  - CLONUS [None]
  - CONFUSIONAL STATE [None]
  - INCOHERENT [None]
  - MENTAL STATUS CHANGES [None]
  - MYDRIASIS [None]
  - OCULAR DISCOMFORT [None]
  - PRESSURE OF SPEECH [None]
  - TACHYCARDIA [None]
